FAERS Safety Report 8921068 (Version 1)
Quarter: 2012Q4

REPORT INFORMATION
  Report Type: 
  Country: US (occurrence: US)
  Receive Date: 20121121
  Receipt Date: 20121121
  Transmission Date: 20130627
  Serious: No
  Sender: FDA-Public Use
  Company Number: US-PFIZER INC-2012290822

PATIENT
  Sex: Female
  Weight: 88.89 kg

DRUGS (4)
  1. XANAX [Suspect]
     Indication: HYPEREXCITABILITY
     Dosage: UNK
  2. XANAX [Suspect]
     Indication: ANXIETY
  3. XANAX [Suspect]
     Indication: PALPITATION
  4. XANAX [Suspect]
     Indication: NERVOUSNESS

REACTIONS (1)
  - Fatigue [Unknown]
